FAERS Safety Report 7623610-7 (Version None)
Quarter: 2011Q3

REPORT INFORMATION
  Report Type: 
  Country: None (occurrence: None)
  Receive Date: 20110712
  Receipt Date: 20110628
  Transmission Date: 20111222
  Serious: Yes (Hospitalization, Other)
  Sender: FDA-Public Use
  Company Number: 2009AC000507

PATIENT
  Age: 64 Year
  Sex: Male

DRUGS (16)
  1. LOPRESSOR [Concomitant]
  2. CARDIZEM CD [Concomitant]
  3. METFORMIN HCL [Concomitant]
  4. PLAVIX [Concomitant]
  5. NITROGLYCERIN [Concomitant]
  6. POTASSIUM [Concomitant]
  7. METOPROLOL TARTRATE [Concomitant]
  8. FLUOXETINE [Concomitant]
  9. ASPIRIN [Concomitant]
  10. TOPROL-XL [Concomitant]
  11. ZOCOR [Concomitant]
  12. DIGOXIN [Suspect]
     Indication: ARRHYTHMIA
     Dosage: 0.125 MG;QD;PO
     Route: 048
     Dates: start: 20040101, end: 20091101
  13. GABAPENTIN [Concomitant]
  14. ZANTAC [Concomitant]
  15. HUMULIN R [Concomitant]
  16. FUROSEMIDE [Concomitant]

REACTIONS (18)
  - MENTAL DISORDER [None]
  - BLOOD GLUCOSE INCREASED [None]
  - PAIN IN EXTREMITY [None]
  - INJURY [None]
  - CHEST PAIN [None]
  - CORONARY ARTERY DISEASE [None]
  - NEURALGIA [None]
  - EJECTION FRACTION DECREASED [None]
  - DEPRESSION [None]
  - CORONARY ARTERY OCCLUSION [None]
  - FAMILY STRESS [None]
  - CARDIAC FAILURE CONGESTIVE [None]
  - EMOTIONAL DISORDER [None]
  - PAIN [None]
  - CORONARY ARTERIAL STENT INSERTION [None]
  - ECONOMIC PROBLEM [None]
  - ANXIETY [None]
  - WEIGHT INCREASED [None]
